FAERS Safety Report 6625868 (Version 14)
Quarter: 2014Q2

REPORT INFORMATION
  Report Type: Spontaneous
  Country: US (occurrence: US)
  Receive Date: 20080428
  Receipt Date: 20140505
  Transmission Date: 20141212
  Serious: Yes (Hospitalization, Other)
  Sender: FDA-Public Use
  Company Number: PHEH2008US03989

PATIENT
  Age: 68 Year
  Sex: Male
  Weight: 99.23 kg

DRUGS (38)
  1. AREDIA [Suspect]
     Indication: PLASMA CELL MYELOMA
     Dosage: UNK UKN, UNK
     Route: 042
  2. ZOMETA [Suspect]
     Dosage: 4 MG
     Route: 042
     Dates: start: 20040621
  3. CHEMOTHERAPEUTICS NOS [Concomitant]
  4. RADIATION THERAPY [Concomitant]
  5. PREDNISONE [Concomitant]
  6. ALKERAN [Concomitant]
  7. THALIDOMIDE [Concomitant]
  8. CYTOXAN [Concomitant]
  9. ASPIRIN ^BAYER^ [Concomitant]
     Dosage: 325 MG, QD
     Route: 048
  10. COLACE [Concomitant]
     Dosage: 100 MG, BID
     Route: 048
  11. NIFEREX (POLYSACCHARIDE-IRON COMPLEX) [Concomitant]
     Dosage: 150 MG, BID
     Route: 048
  12. ZOCOR ^DIECKMANN^ [Concomitant]
     Dosage: 20 MG, QD
     Route: 048
  13. PEPCID [Concomitant]
     Dosage: 20 MG, BID
     Route: 048
  14. AMIODARONE [Concomitant]
     Dosage: 200 MG, BID
     Route: 048
  15. CARVEDILOL [Concomitant]
     Dosage: 6.25 MG, BID
     Route: 048
  16. LISINOPRIL [Concomitant]
     Dosage: 10 MG, QD
     Route: 048
  17. LASIX [Concomitant]
     Dosage: 20 MG, BID
     Route: 048
  18. MILK OF MAGNESIA [Concomitant]
     Dosage: 30 ML, PRN
     Route: 048
  19. TYLENOL [Concomitant]
     Dosage: 1000 MG, PRN
     Route: 048
  20. MAALOX                                  /USA/ [Concomitant]
     Dosage: 30 ML, PRN
     Route: 048
  21. DARVOCET-N [Concomitant]
     Dosage: 100 MG, PRN
     Route: 048
  22. CELEXA [Concomitant]
     Dosage: 20 MG, QD
     Route: 048
  23. DECADRON                                /CAN/ [Concomitant]
  24. AMOXICILLIN [Concomitant]
     Dosage: 500 MG
  25. PERIDEX [Concomitant]
  26. VELCADE [Concomitant]
  27. OMNICEF [Concomitant]
     Dosage: 300 MG
  28. CYCLOPHOSPHAMIDE [Concomitant]
  29. ZITHROMAX ^HEINRICH MACK^ [Concomitant]
  30. DEXAMETHASONE [Concomitant]
  31. TRAMADOL [Concomitant]
  32. CEPHALEXIN [Concomitant]
  33. FERREX [Concomitant]
  34. KETOROLAC [Concomitant]
  35. SIMVASTATIN [Concomitant]
     Dosage: 10 MG, QD
     Route: 048
  36. CENTRUM SILVER [Concomitant]
  37. FINASTERIDE [Concomitant]
     Dosage: 5 MG
  38. REVLIMID [Concomitant]

REACTIONS (116)
  - Osteonecrosis of jaw [Unknown]
  - Pain [Unknown]
  - Infection [Unknown]
  - Scar [Unknown]
  - Injury [Unknown]
  - Emotional distress [Unknown]
  - Anxiety [Unknown]
  - Physical disability [Unknown]
  - Nocturia [Unknown]
  - Dysuria [Unknown]
  - Rotator cuff syndrome [Unknown]
  - Musculoskeletal discomfort [Unknown]
  - Bone disorder [Unknown]
  - Productive cough [Unknown]
  - Paranasal sinus hypersecretion [Unknown]
  - Herpes zoster [Unknown]
  - Cardiac valve disease [Unknown]
  - Depression [Unknown]
  - Benign prostatic hyperplasia [Unknown]
  - Cardiac failure congestive [Unknown]
  - Ventricular dysfunction [Unknown]
  - Aortic stenosis [Unknown]
  - Coronary artery disease [Unknown]
  - Respiratory failure [Recovered/Resolved]
  - Dyspnoea [Unknown]
  - Loss of consciousness [Unknown]
  - Fall [Unknown]
  - Periorbital contusion [Unknown]
  - Hyponatraemia [Unknown]
  - Pancytopenia [Unknown]
  - Anaemia [Unknown]
  - Walking aid user [Unknown]
  - Blood pressure diastolic decreased [Unknown]
  - Cyst [Unknown]
  - Eating disorder [Unknown]
  - Epistaxis [Unknown]
  - Dysphagia [Unknown]
  - Cardiac disorder [Unknown]
  - Dupuytren^s contracture [Unknown]
  - Amnesia [Unknown]
  - Visual impairment [Unknown]
  - Atrial fibrillation [Unknown]
  - Dental caries [Unknown]
  - Gingival disorder [Unknown]
  - Oedema [Unknown]
  - Headache [Unknown]
  - Dizziness [Unknown]
  - Haematuria [Unknown]
  - Sinusitis [Unknown]
  - Syncope [Unknown]
  - Orthopnoea [Unknown]
  - Urine abnormality [Unknown]
  - Hypoaesthesia [Unknown]
  - Paraesthesia [Unknown]
  - Poor personal hygiene [Unknown]
  - Dental plaque [Unknown]
  - Mouth haemorrhage [Unknown]
  - Pain in jaw [Unknown]
  - Blister [Recovering/Resolving]
  - Wound infection [Unknown]
  - Enterococcal infection [Unknown]
  - Mitral valve incompetence [Unknown]
  - Tricuspid valve incompetence [Unknown]
  - Fatigue [Unknown]
  - Asthenia [Unknown]
  - Constipation [Unknown]
  - Haemoglobin decreased [Unknown]
  - VIIth nerve paralysis [Unknown]
  - Oral pain [Unknown]
  - Hypotension [Unknown]
  - Gastrooesophageal reflux disease [Unknown]
  - Diverticulum [Unknown]
  - Flank pain [Unknown]
  - Lung infiltration [Unknown]
  - Cardiomegaly [Unknown]
  - Splenomegaly [Unknown]
  - Renal cyst [Unknown]
  - Renal failure [Unknown]
  - Bronchitis [Unknown]
  - Pneumonia [Unknown]
  - Ecchymosis [Unknown]
  - Metastases to spine [Unknown]
  - Bone pain [Unknown]
  - Aortic arteriosclerosis [Unknown]
  - Exostosis [Unknown]
  - Osteopenia [Unknown]
  - Spinal osteoarthritis [Unknown]
  - Arthralgia [Unknown]
  - Exposed bone in jaw [Unknown]
  - Atelectasis [Unknown]
  - Vascular calcification [Unknown]
  - Encephalopathy [Unknown]
  - Confusional state [Unknown]
  - Arrhythmia [Unknown]
  - Dyslipidaemia [Unknown]
  - Atrial flutter [Unknown]
  - Chest pain [Unknown]
  - Aphagia [Unknown]
  - Prostatomegaly [Unknown]
  - Haematoma [Unknown]
  - Decreased appetite [Unknown]
  - Abdominal pain [Unknown]
  - Back pain [Unknown]
  - Stomatitis [Unknown]
  - Aortic valve calcification [Unknown]
  - Mitral valve calcification [Unknown]
  - Dilatation ventricular [Unknown]
  - Left ventricular hypertrophy [Unknown]
  - Insomnia [Unknown]
  - Skin infection [Unknown]
  - Wound [Unknown]
  - Bundle branch block right [Unknown]
  - Aortic disorder [Unknown]
  - Neuropathy peripheral [Recovering/Resolving]
  - Upper respiratory tract infection [Recovering/Resolving]
  - Weight decreased [Unknown]
